FAERS Safety Report 5600908-5 (Version None)
Quarter: 2008Q1

REPORT INFORMATION
  Report Type: 
  Country: None (occurrence: None)
  Receive Date: 20080124
  Receipt Date: 20080116
  Transmission Date: 20080703
  Serious: Yes (Other)
  Sender: FDA-Public Use
  Company Number: US-JNJFOC-20080104581

PATIENT
  Sex: Female
  Weight: 83.92 kg

DRUGS (12)
  1. TOPAMAX [Suspect]
     Indication: MIGRAINE PROPHYLAXIS
     Route: 048
  2. ACIPHEX [Concomitant]
     Indication: GASTROOESOPHAGEAL REFLUX DISEASE
  3. CORGARD [Concomitant]
  4. ALLEGRA D 24 HOUR [Concomitant]
     Indication: MULTIPLE ALLERGIES
  5. DARVOCET [Concomitant]
     Indication: MIGRAINE
  6. ALBUTEROL [Concomitant]
     Indication: ASTHMA
  7. VICODIN [Concomitant]
     Indication: MIGRAINE
  8. TYLENOL (CAPLET) [Concomitant]
     Indication: PAIN
  9. SINGULAIR [Concomitant]
     Indication: ASTHMA
  10. XANAX [Concomitant]
  11. ZOLOFT [Concomitant]
     Indication: DEPRESSION
  12. SLO-BID [Concomitant]
     Indication: ASTHMA

REACTIONS (5)
  - DIARRHOEA [None]
  - HYPOAESTHESIA [None]
  - PARAESTHESIA [None]
  - RESPIRATORY DISTRESS [None]
  - VISION BLURRED [None]
